FAERS Safety Report 7161720-1 (Version None)
Quarter: 2010Q4

REPORT INFORMATION
  Report Type: 
  Country: None (occurrence: None)
  Receive Date: 20101215
  Receipt Date: 20100701
  Transmission Date: 20110411
  Serious: No
  Sender: FDA-Public Use
  Company Number: US-ABBOTT-10P-163-0649734-00

PATIENT
  Age: 47 Year
  Sex: Female
  Weight: 51 kg

DRUGS (4)
  1. NIMBEX [Suspect]
     Indication: PARALYSIS
     Route: 040
     Dates: start: 20100603, end: 20100603
  2. PEPCID [Concomitant]
     Indication: PRODUCT USED FOR UNKNOWN INDICATION
     Route: 042
  3. IV FLUIDS [Concomitant]
     Indication: PRODUCT USED FOR UNKNOWN INDICATION
     Route: 042
  4. VECURONIUM BROMIDE [Concomitant]
     Indication: PARALYSIS
     Route: 042
     Dates: start: 20100603

REACTIONS (1)
  - DRUG INEFFECTIVE [None]
